FAERS Safety Report 5493064-8 (Version None)
Quarter: 2007Q4

REPORT INFORMATION
  Report Type: 
  Country: None (occurrence: None)
  Receive Date: 20071019
  Receipt Date: 20071010
  Transmission Date: 20080405
  Serious: Yes (Other)
  Sender: FDA-Public Use
  Company Number: 17633

PATIENT
  Sex: Male

DRUGS (5)
  1. VINCRISTINE [Suspect]
     Indication: ANAPLASTIC LARGE CELL LYMPHOMA T- AND NULL-CELL TYPES
  2. CYCLOPHOSPHAMIDE [Suspect]
     Indication: ANAPLASTIC LARGE CELL LYMPHOMA T- AND NULL-CELL TYPES
     Dosage: NOT CONTINUING
  3. DAUNOMYCIN [Suspect]
     Indication: ANAPLASTIC LARGE CELL LYMPHOMA T- AND NULL-CELL TYPES
  4. POLYETHENE GLYCOL ASPARAGINASE [Suspect]
     Indication: ANAPLASTIC LARGE CELL LYMPHOMA T- AND NULL-CELL TYPES
  5. PREDNISONE [Suspect]
     Indication: STEROID THERAPY

REACTIONS (9)
  - DEEP VEIN THROMBOSIS [None]
  - ERYTHEMA [None]
  - HYPERTENSION [None]
  - LEG AMPUTATION [None]
  - MYELOPROLIFERATIVE DISORDER [None]
  - OEDEMA PERIPHERAL [None]
  - PAIN IN EXTREMITY [None]
  - PERIPHERAL ISCHAEMIA [None]
  - TYPE 2 DIABETES MELLITUS [None]
